FAERS Safety Report 6286011-2 (Version None)
Quarter: 2009Q3

REPORT INFORMATION
  Report Type: 
  Country: None (occurrence: None)
  Receive Date: 20090728
  Receipt Date: 20090721
  Transmission Date: 20100115
  Serious: Yes (Death)
  Sender: FDA-Public Use
  Company Number: JP-BAYER-200812859BYL

PATIENT
  Age: 70 Year
  Sex: Male
  Weight: 55 kg

DRUGS (5)
  1. NEXAVAR [Suspect]
     Indication: RENAL CELL CARCINOMA STAGE IV
     Dosage: TOTAL DAILY DOSE: 800 MG  UNIT DOSE: 200 MG
     Route: 048
     Dates: start: 20081106, end: 20081116
  2. NOVAMIN [Concomitant]
     Dosage: AS USED: 15 MG
     Route: 048
     Dates: start: 20081006, end: 20081116
  3. MAGMITT [Concomitant]
     Dosage: AS USED: 750 MG
     Route: 048
     Dates: start: 20081006, end: 20081116
  4. OXYCONTIN [Concomitant]
     Dosage: AS USED: 40 MG
     Route: 048
     Dates: start: 20081006, end: 20081116
  5. ZOMETA [Concomitant]
     Dosage: AS USED: 3 MG
     Route: 042
     Dates: start: 20081030, end: 20081030

REACTIONS (1)
  - SUDDEN DEATH [None]
